FAERS Safety Report 23149080 (Version 1)
Quarter: 2023Q4

REPORT INFORMATION
  Report Type: Other
  Country: GB (occurrence: GB)
  Receive Date: 20231106
  Receipt Date: 20231106
  Transmission Date: 20240109
  Serious: Yes (Other)
  Sender: FDA-Public Use
  Company Number: GB-GLENMARK PHARMACEUTICALS-2023GMK086229

PATIENT

DRUGS (3)
  1. EZETIMIBE [Suspect]
     Active Substance: EZETIMIBE
     Indication: Product used for unknown indication
     Dosage: 10 (UNIT NOT PROVIDED) UNK
     Route: 065
     Dates: start: 20230814
  2. BEMPEDOIC ACID [Suspect]
     Active Substance: BEMPEDOIC ACID
     Indication: Product used for unknown indication
     Dosage: 180 MILLIGRAM, OD
     Route: 065
     Dates: start: 20231006
  3. FAMTOZINAMERAN\TOZINAMERAN [Concomitant]
     Active Substance: FAMTOZINAMERAN\TOZINAMERAN
     Indication: Product used for unknown indication
     Dosage: 0.3 MILLILITER
     Route: 030
     Dates: start: 20231002, end: 20231002

REACTIONS (4)
  - Loss of consciousness [Unknown]
  - Pain in extremity [Unknown]
  - Muscle spasms [Unknown]
  - Paraesthesia [Unknown]
